FAERS Safety Report 21462872 (Version 1)
Quarter: 2022Q4

REPORT INFORMATION
  Report Type: Spontaneous
  Country: US (occurrence: US)
  Receive Date: 20221017
  Receipt Date: 20221017
  Transmission Date: 20230113
  Serious: No
  Sender: FDA-Public Use
  Company Number: US-NOVAST LABORATORIES INC.-2021NOV000345

PATIENT

DRUGS (1)
  1. LARIN FE 1/20 [Suspect]
     Active Substance: ETHINYL ESTRADIOL\NORETHINDRONE ACETATE
     Indication: Contraception
     Dosage: 1 TABLET BY MOUTH DAILY
     Route: 048
     Dates: start: 202007

REACTIONS (3)
  - Product dose omission issue [Unknown]
  - Nausea [Unknown]
  - Nervousness [Unknown]

NARRATIVE: CASE EVENT DATE: 20211101
